FAERS Safety Report 6126718-0 (Version None)
Quarter: 2009Q1

REPORT INFORMATION
  Report Type: 
  Country: None (occurrence: None)
  Receive Date: 20090320
  Receipt Date: 20080509
  Transmission Date: 20090719
  Serious: No
  Sender: FDA-Public Use
  Company Number: US-ABBOTT-08P-163-0436371-00

PATIENT
  Sex: Female
  Weight: 54.48 kg

DRUGS (1)
  1. ERYTHROMYCIN [Suspect]
     Indication: INFECTION
     Route: 048
     Dates: start: 19880101

REACTIONS (3)
  - HYPERSENSITIVITY [None]
  - INFLUENZA LIKE ILLNESS [None]
  - MALAISE [None]
